FAERS Safety Report 4363436-3 (Version None)
Quarter: 2004Q2

REPORT INFORMATION
  Report Type: 
  Country: None (occurrence: None)
  Receive Date: 20040524
  Receipt Date: 20040511
  Transmission Date: 20050107
  Serious: Yes (Hospitalization)
  Sender: FDA-Public Use
  Company Number: JP-GLAXOSMITHKLINE-B0332647A

PATIENT
  Sex: Male

DRUGS (1)
  1. ZEFIX [Suspect]
     Dosage: 100MG PER DAY
     Route: 048
     Dates: start: 20040427, end: 20040429

REACTIONS (1)
  - CONFUSIONAL STATE [None]
